FAERS Safety Report 17604223 (Version 1)
Quarter: 2020Q1

REPORT INFORMATION
  Report Type: Spontaneous
  Country: US (occurrence: US)
  Receive Date: 20200331
  Receipt Date: 20200331
  Transmission Date: 20200409
  Serious: Yes (Other)
  Sender: FDA-Public Use
  Company Number: US-PFIZER INC-2020131592

PATIENT
  Age: 47 Year
  Sex: Male

DRUGS (1)
  1. SOMAVERT [Suspect]
     Active Substance: PEGVISOMANT
     Indication: ACROMEGALY
     Dosage: 30 MG, DAILY
     Route: 058
     Dates: start: 2019

REACTIONS (10)
  - Abnormal organ growth [Unknown]
  - Drug ineffective [Unknown]
  - Intentional product misuse [Unknown]
  - Condition aggravated [Unknown]
  - Pain [Unknown]
  - Cardiac disorder [Unknown]
  - Skin hypertrophy [Unknown]
  - Fungal infection [Unknown]
  - Insulin-like growth factor increased [Unknown]
  - Eye infection [Unknown]
